FAERS Safety Report 18501023 (Version 1)
Quarter: 2020Q4

REPORT INFORMATION
  Report Type: Spontaneous
  Country: US (occurrence: US)
  Receive Date: 20201113
  Receipt Date: 20201113
  Transmission Date: 20210114
  Serious: No
  Sender: FDA-Public Use
  Company Number: US-ASTRAZENECA-2008BM15652

PATIENT
  Age: 61 Year
  Sex: Male

DRUGS (6)
  1. BYETTA [Suspect]
     Active Substance: EXENATIDE
     Dosage: UNK
     Route: 058
  2. EXENATIDE. [Concomitant]
     Active Substance: EXENATIDE
  3. METFORMIN [Concomitant]
     Active Substance: METFORMIN HYDROCHLORIDE
     Dosage: UNK
  4. BYDUREON [Suspect]
     Active Substance: EXENATIDE
     Route: 058
  5. BYETTA [Suspect]
     Active Substance: EXENATIDE
     Dosage: 5 ??G, BID
     Route: 058
     Dates: start: 200803
  6. EXENATIDE. [Concomitant]
     Active Substance: EXENATIDE

REACTIONS (4)
  - Wrong technique in product usage process [Unknown]
  - Incorrect dose administered by device [Unknown]
  - Device malfunction [Unknown]
  - Injection site extravasation [Not Recovered/Not Resolved]

NARRATIVE: CASE EVENT DATE: 2008
